FAERS Safety Report 5939008-3 (Version None)
Quarter: 2008Q4

REPORT INFORMATION
  Report Type: 
  Country: None (occurrence: None)
  Receive Date: 20081103
  Receipt Date: 20081020
  Transmission Date: 20090506
  Serious: No
  Sender: FDA-Public Use
  Company Number: US-BAYER-200814130BCC

PATIENT
  Age: 58 Year
  Sex: Female
  Weight: 59 kg

DRUGS (5)
  1. ALEVE (CAPLET) [Suspect]
     Indication: MUSCULOSKELETAL PAIN
     Dosage: TOTAL DAILY DOSE: 880 MG  UNIT DOSE: 220 MG
     Route: 048
     Dates: start: 20080907, end: 20081019
  2. VITAMIN CAP [Concomitant]
  3. ESTER C [Concomitant]
  4. ECHINACEA [Concomitant]
  5. GINKO BILOBA [Concomitant]

REACTIONS (1)
  - RASH [None]
